FAERS Safety Report 9322829 (Version 2)
Quarter: 2013Q4

REPORT INFORMATION
  Report Type: Spontaneous
  Country: US (occurrence: US)
  Receive Date: 20130601
  Receipt Date: 20131008
  Transmission Date: 20140711
  Serious: No
  Sender: FDA-Public Use
  Company Number: US-ASTRAZENECA-2013SE38575

PATIENT
  Age: 50 Year
  Sex: Female
  Weight: 104.3 kg

DRUGS (18)
  1. NEXIUM [Suspect]
     Indication: BOWEL MOVEMENT IRREGULARITY
     Dosage: TWICE A DAY
     Route: 048
     Dates: start: 2006, end: 2010
  2. NEXIUM [Suspect]
     Indication: GASTRIC DISORDER
     Dosage: TWICE A DAY
     Route: 048
     Dates: start: 2006, end: 2010
  3. NEXIUM [Suspect]
     Indication: BOWEL MOVEMENT IRREGULARITY
     Route: 048
     Dates: start: 20110512
  4. NEXIUM [Suspect]
     Indication: GASTRIC DISORDER
     Route: 048
     Dates: start: 20110512
  5. ALKA-SELTZER [Concomitant]
  6. ROLAIDS [Concomitant]
  7. TUMS [Concomitant]
  8. FUROSEMIDE [Concomitant]
     Route: 048
     Dates: start: 20110526
  9. OXYCODONE-ACETAMINOPHEN [Concomitant]
     Indication: PAIN
     Dosage: 10-650,TAKE 1 TABLET BY MOUTH EVERY SIX HOURS IF NEEDED
     Route: 048
     Dates: start: 20110526
  10. LYRICA [Concomitant]
     Route: 048
     Dates: start: 20110512
  11. METOPROLOL TARTRATE [Concomitant]
     Route: 048
     Dates: start: 20110512
  12. TOPIRAMATE [Concomitant]
     Route: 048
     Dates: start: 20111016
  13. KLOR-CON [Concomitant]
     Route: 048
     Dates: start: 20111016
  14. LEVOTHYROXINE [Concomitant]
     Route: 048
     Dates: start: 20111016
  15. SIMVASTATIN [Concomitant]
     Route: 048
     Dates: start: 20111016
  16. SUCRALFATE [Concomitant]
     Dosage: 1 GM TABLET
     Route: 048
     Dates: start: 20111006
  17. GABAPENTIN [Concomitant]
     Route: 048
     Dates: start: 20111006
  18. SERTRALINE HCL [Concomitant]
     Route: 048
     Dates: start: 20110722

REACTIONS (13)
  - Osteoporosis [Unknown]
  - Bone disorder [Unknown]
  - Multiple fractures [Unknown]
  - Arthritis [Unknown]
  - Angina pectoris [Unknown]
  - Diabetes mellitus [Unknown]
  - Rheumatoid arthritis [Unknown]
  - Scoliosis [Unknown]
  - Hypothyroidism [Unknown]
  - Vitamin D deficiency [Unknown]
  - Limb discomfort [Unknown]
  - Gait disturbance [Unknown]
  - Depression [Unknown]
